FAERS Safety Report 7547347-8 (Version None)
Quarter: 2011Q2

REPORT INFORMATION
  Report Type: 
  Country: None (occurrence: None)
  Receive Date: 20110614
  Receipt Date: 20110531
  Transmission Date: 20111010
  Serious: Yes (Other)
  Sender: FDA-Public Use
  Company Number: US-ELI_LILLY_AND_COMPANY-US201007006494

PATIENT
  Sex: Female
  Weight: 45 kg

DRUGS (6)
  1. FORTEO [Suspect]
     Dosage: 20 UG, DAILY (1/D)
  2. FORTEO [Suspect]
     Dosage: 20 UG, DAILY (1/D)
  3. FORTEO [Suspect]
     Indication: OSTEOPOROSIS
     Dosage: 20 UG, DAILY (1/D)
     Dates: start: 20100317
  4. FORTEO [Suspect]
     Dosage: 20 UG, DAILY (1/D)
  5. FORTEO [Suspect]
     Dosage: 20 UG, QD
  6. FORTEO [Suspect]
     Dosage: 20 UG, DAILY (1/D)

REACTIONS (16)
  - FATIGUE [None]
  - MALAISE [None]
  - DYSGEUSIA [None]
  - EYE OPERATION [None]
  - DECREASED APPETITE [None]
  - BLOOD CALCIUM DECREASED [None]
  - BACK PAIN [None]
  - BLOOD POTASSIUM DECREASED [None]
  - NAUSEA [None]
  - GLAUCOMA [None]
  - VITAMIN D DECREASED [None]
  - BODY HEIGHT DECREASED [None]
  - MUSCLE SPASMS [None]
  - WEIGHT DECREASED [None]
  - VISUAL ACUITY REDUCED [None]
  - GAIT DISTURBANCE [None]
